FAERS Safety Report 9722663 (Version 1)
Quarter: 2013Q2

REPORT INFORMATION
  Report Type: Spontaneous
  Country: US (occurrence: None)
  Receive Date: 20130617
  Receipt Date: 20130617
  Transmission Date: 20140414
  Serious: Yes (Hospitalization)
  Sender: FDA-Public Use
  Company Number: US-000710

PATIENT
  Age: 59 Year
  Sex: Female

DRUGS (10)
  1. TEDUGLUTIDE [Suspect]
     Indication: SHORT-BOWEL SYNDROME
     Dosage: STREN/VOLUM:  0.14ML/D/FREQ: EVERY OTHER DAY SUBCUTANEOUS)
     Dates: start: 20130401, end: 20130512
  2. SOLUTIONS FOR PARENTERAL NUTRITION [Concomitant]
  3. METHOTREXATE (TO CONTINUING) [Concomitant]
  4. VITAMIN B12 /07503801/ [Concomitant]
  5. CALCIFEROL /00318501/ [Concomitant]
  6. LYRICA (TO CONTINUING) [Concomitant]
  7. RIFAXIMIN (TO CONTINUING) [Concomitant]
  8. CIMZIA )TO CONTINUING) [Concomitant]
  9. ESTRADIOL (TO CONTINUING) [Concomitant]
  10. LOPERAMIDE (TO CONTINUING) [Concomitant]

REACTIONS (3)
  - Hydronephrosis [None]
  - Device occlusion [None]
  - Gastrointestinal disorder [None]
